FAERS Safety Report 5067081-6 (Version None)
Quarter: 2006Q3

REPORT INFORMATION
  Report Type: 
  Country: None (occurrence: None)
  Receive Date: 20060727
  Receipt Date: 20060714
  Transmission Date: 20061208
  Serious: Yes (Other)
  Sender: FDA-Public Use
  Company Number: 2668

PATIENT
  Age: 14 Year
  Sex: Male

DRUGS (5)
  1. AMNESTEEM [Suspect]
     Indication: ACNE
     Dosage: 40 MG, QD, PO
     Route: 048
     Dates: start: 20060201, end: 20060401
  2. IBUPROFEN [Concomitant]
  3. RHINOCORT SUSPENSION (BUDESONIDE) [Concomitant]
  4. AMPICILLIN [Concomitant]
  5. RETIN-A GEL [Concomitant]

REACTIONS (1)
  - DRUG INEFFECTIVE [None]
